FAERS Safety Report 6349935-3 (Version None)
Quarter: 2009Q3

REPORT INFORMATION
  Report Type: 
  Country: None (occurrence: None)
  Receive Date: 20090911
  Receipt Date: 20090622
  Transmission Date: 20100115
  Serious: No
  Sender: FDA-Public Use
  Company Number: US-ABBOTT-06P-163-0344705-00

PATIENT
  Sex: Female
  Weight: 100 kg

DRUGS (2)
  1. HUMIRA [Suspect]
     Indication: PSORIATIC ARTHROPATHY
     Route: 058
     Dates: start: 20060701, end: 20060922
  2. HUMIRA [Suspect]
     Route: 058
     Dates: start: 20060922

REACTIONS (2)
  - INCORRECT DOSE ADMINISTERED [None]
  - WRONG TECHNIQUE IN DRUG USAGE PROCESS [None]
